FAERS Safety Report 5983273-3 (Version None)
Quarter: 2008Q4

REPORT INFORMATION
  Report Type: 
  Country: None (occurrence: None)
  Receive Date: 20081208
  Receipt Date: 20071203
  Transmission Date: 20090506
  Serious: Yes (Other)
  Sender: FDA-Public Use
  Company Number: US-AMGEN-STX253221

PATIENT
  Sex: Female

DRUGS (7)
  1. ENBREL [Suspect]
     Indication: PSORIASIS
     Route: 058
     Dates: start: 20070729
  2. RESTASIS [Concomitant]
     Route: 047
  3. ZOLOFT [Concomitant]
     Route: 048
  4. WELLBUTRIN [Concomitant]
     Route: 048
  5. TRANXENE [Concomitant]
     Route: 048
  6. PREMARIN [Concomitant]
     Route: 048
  7. ACIPHEX [Concomitant]
     Route: 048

REACTIONS (1)
  - BLOOD PRESSURE INCREASED [None]
